FAERS Safety Report 24761021 (Version 1)
Quarter: 2024Q4

REPORT INFORMATION
  Report Type: Report from Study
  Country: CA (occurrence: CA)
  Receive Date: 20241220
  Receipt Date: 20241220
  Transmission Date: 20250115
  Serious: Yes (Other)
  Sender: BIOCON
  Company Number: CA-BIOCON BIOLOGICS LIMITED-BBL2024004441

PATIENT

DRUGS (2)
  1. HULIO [Suspect]
     Active Substance: ADALIMUMAB-FKJP
     Indication: Arthritis
     Dosage: 40 MG, BIWEEKLY
     Route: 058
     Dates: start: 20240612
  2. HULIO [Suspect]
     Active Substance: ADALIMUMAB-FKJP
     Dosage: 40 MG, QW
     Route: 058
     Dates: start: 20240612

REACTIONS (3)
  - Recurrent cancer [Unknown]
  - Arthritis [Unknown]
  - Off label use [Unknown]
